FAERS Safety Report 4356599-7 (Version None)
Quarter: 2004Q2

REPORT INFORMATION
  Report Type: 
  Country: None (occurrence: None)
  Receive Date: 20040507
  Receipt Date: 20040428
  Transmission Date: 20050107
  Serious: Yes (Life-Threatening, Hospitalization, Other)
  Sender: FDA-Public Use
  Company Number: 2004EU000823

PATIENT
  Age: 57 Year
  Sex: Male

DRUGS (2)
  1. PROTOPIC [Suspect]
     Indication: BALANITIS
     Dosage: 0.10 %/D, TOPICAL
     Route: 061
     Dates: start: 20031103, end: 20040113
  2. DERMOVATE (CLOBETASOL PROPIONATE) [Concomitant]

REACTIONS (11)
  - ATOPY [None]
  - DRY SKIN [None]
  - HYPERKERATOSIS [None]
  - PENILE ULCERATION [None]
  - PETECHIAE [None]
  - SKIN DEPIGMENTATION [None]
  - SKIN HYPERTROPHY [None]
  - SKIN INFLAMMATION [None]
  - SKIN NODULE [None]
  - SKIN PAPILLOMA [None]
  - SQUAMOUS CELL CARCINOMA [None]
